FAERS Safety Report 23188709 (Version 2)
Quarter: 2024Q1

REPORT INFORMATION
  Report Type: Spontaneous
  Country: US (occurrence: US)
  Receive Date: 20231115
  Receipt Date: 20240202
  Transmission Date: 20240410
  Serious: Yes (Hospitalization, Other)
  Sender: FDA-Public Use
  Company Number: US-PFIZER INC-202300360741

PATIENT
  Age: 29 Year
  Sex: Female
  Weight: 95 kg

DRUGS (14)
  1. XELJANZ [Suspect]
     Active Substance: TOFACITINIB CITRATE
     Indication: Psoriatic arthropathy
     Dosage: 5 MG TWICE A DAY
     Route: 048
     Dates: start: 20230914
  2. FISH OIL [Concomitant]
     Active Substance: FISH OIL
     Dosage: UNK (340-100)
     Dates: start: 202006
  3. ACETAMINOPHEN\HYDROCODONE [Concomitant]
     Active Substance: ACETAMINOPHEN\HYDROCODONE
     Dosage: UNK (5 MG-32)
     Dates: start: 20230916
  4. IBUPROFEN [Concomitant]
     Active Substance: IBUPROFEN
     Dosage: UNK
     Dates: start: 202309
  5. GERI KOT [Concomitant]
     Dosage: UNK
     Dates: start: 20230916
  6. QULIPTA [Concomitant]
     Active Substance: ATOGEPANT
     Dosage: UNK
     Dates: start: 202306
  7. CLINDAMYCIN PHOSPHATE [Concomitant]
     Active Substance: CLINDAMYCIN PHOSPHATE
     Dosage: UNK
     Dates: end: 202305
  8. METOPROLOL SUCCINATE [Concomitant]
     Active Substance: METOPROLOL SUCCINATE
     Dosage: UNK
     Dates: end: 202308
  9. TRETINOIN [Concomitant]
     Active Substance: TRETINOIN
     Dosage: UNK
  10. MINOCYCLINE HYDROCHLORIDE [Concomitant]
     Active Substance: MINOCYCLINE HYDROCHLORIDE
     Dosage: UNK
     Dates: end: 202308
  11. METFORMIN HYDROCHLORIDE [Concomitant]
     Active Substance: METFORMIN HYDROCHLORIDE
     Dosage: METFORMIN HCL ER
     Dates: end: 202308
  12. SULFAMETHOXAZOLE AND TRIMETHOPRIM [Concomitant]
     Active Substance: SULFAMETHOXAZOLE\TRIMETHOPRIM
     Dosage: UNK (800-160)
     Dates: start: 202306
  13. NEW DAY [Concomitant]
     Active Substance: LEVONORGESTREL
     Dosage: UNK
     Dates: start: 202306
  14. PHENTERMINE [Concomitant]
     Active Substance: PHENTERMINE
     Dosage: UNK

REACTIONS (3)
  - Appendicitis [Recovered/Resolved]
  - Arthralgia [Not Recovered/Not Resolved]
  - Condition aggravated [Not Recovered/Not Resolved]

NARRATIVE: CASE EVENT DATE: 20230101
